FAERS Safety Report 5274954-8 (Version None)
Quarter: 2007Q1

REPORT INFORMATION
  Report Type: 
  Country: None (occurrence: None)
  Receive Date: 20061207
  Receipt Date: 20060824
  Transmission Date: 20070707
  Serious: No
  Sender: FDA-Public Use
  Company Number: 36282

PATIENT
  Sex: Female

DRUGS (5)
  1. NEVANAC [Suspect]
  2. ALPHAGAN SOLUTION [Concomitant]
  3. TIMOLOL MALEATE [Concomitant]
  4. PILOCARPINE [Concomitant]
  5. PRED FORTE [Concomitant]

REACTIONS (1)
  - INJURY [None]
